FAERS Safety Report 25215524 (Version 1)
Quarter: 2025Q2

REPORT INFORMATION
  Report Type: Spontaneous
  Country: US (occurrence: US)
  Receive Date: 20250418
  Receipt Date: 20250418
  Transmission Date: 20250716
  Serious: No
  Sender: Phathom Pharmaceuticals
  Company Number: US-PHATHOM PHARMACEUTICALS INC.-2025PHT00542

PATIENT
  Sex: Male

DRUGS (2)
  1. VOQUEZNA TRIPLE PAK [Suspect]
     Active Substance: AMOXICILLIN\CLARITHROMYCIN\VONOPRAZAN FUMARATE
     Indication: Helicobacter infection
     Dosage: 20/500/500 MG, 2X/DAY
     Route: 048
     Dates: start: 202503, end: 202503
  2. VOQUEZNA TRIPLE PAK [Suspect]
     Active Substance: AMOXICILLIN\CLARITHROMYCIN\VONOPRAZAN FUMARATE
     Route: 048
     Dates: start: 20250311, end: 20250311

REACTIONS (10)
  - Pain [Not Recovered/Not Resolved]
  - Myalgia [Not Recovered/Not Resolved]
  - Motor dysfunction [Not Recovered/Not Resolved]
  - Vision blurred [Not Recovered/Not Resolved]
  - Dyspnoea [Unknown]
  - Feeling abnormal [Unknown]
  - Malaise [Unknown]
  - Paraesthesia [Unknown]
  - Dizziness [Not Recovered/Not Resolved]
  - Headache [Not Recovered/Not Resolved]

NARRATIVE: CASE EVENT DATE: 20250301
